FAERS Safety Report 8968224 (Version 1)
Quarter: 2012Q4

REPORT INFORMATION
  Report Type: Spontaneous
  Country: US (occurrence: None)
  Receive Date: 20121213
  Receipt Date: 20121213
  Transmission Date: 20130627
  Serious: Yes (Other)
  Sender: FDA-Public Use
  Company Number: None

PATIENT
  Age: 42 Year
  Sex: Male
  Weight: 105 kg

DRUGS (1)
  1. HYDROCHLOROTHIAZIDE\LISINOPRIL [Suspect]
     Indication: HYPERTENSION
     Route: 048
     Dates: start: 20120517, end: 20120822

REACTIONS (2)
  - Angioedema [None]
  - Dyspnoea [None]
